FAERS Safety Report 24118647 (Version 2)
Quarter: 2024Q3

REPORT INFORMATION
  Report Type: Spontaneous
  Country: JP (occurrence: JP)
  Receive Date: 20240722
  Receipt Date: 20240726
  Transmission Date: 20241017
  Serious: Yes (Hospitalization, Other)
  Sender: ROCHE
  Company Number: JP-CHUGAI-2024023966

PATIENT
  Age: 77 Year
  Sex: Male

DRUGS (1)
  1. VABYSMO [Suspect]
     Active Substance: FARICIMAB\FARICIMAB-SVOA
     Indication: Neovascular age-related macular degeneration
     Dosage: 6 MILLIGRAM, SINGLE
     Route: 050
     Dates: start: 202406, end: 202406

REACTIONS (2)
  - Necrotising retinitis [Not Recovered/Not Resolved]
  - Herpes virus infection [Unknown]

NARRATIVE: CASE EVENT DATE: 20240703
